FAERS Safety Report 10413109 (Version 1)
Quarter: 2014Q3

REPORT INFORMATION
  Report Type: Spontaneous
  Country: CA (occurrence: CA)
  Receive Date: 20140827
  Receipt Date: 20140827
  Transmission Date: 20150326
  Serious: Yes (Life-Threatening, Hospitalization)
  Sender: FDA-Public Use
  Company Number: CA-GLAXOSMITHKLINE-A1086620A

PATIENT
  Age: 53 Year
  Sex: Female

DRUGS (14)
  1. ACETYLSALICYLIC ACID [Concomitant]
     Active Substance: ASPIRIN
  2. CEFTRIAXONE. [Concomitant]
     Active Substance: CEFTRIAXONE
  3. MYFORTIC [Suspect]
     Active Substance: MYCOPHENOLATE SODIUM
     Indication: PRODUCT USED FOR UNKNOWN INDICATION
     Dosage: 720MG SINGLE DOSE
     Route: 048
  4. LUMIGAN [Concomitant]
     Active Substance: BIMATOPROST
  5. NITROGLYCERIN. [Concomitant]
     Active Substance: NITROGLYCERIN
  6. OXYGEN. [Concomitant]
     Active Substance: OXYGEN
     Route: 055
  7. PLAQUENIL [Concomitant]
     Active Substance: HYDROXYCHLOROQUINE SULFATE
  8. CALCIUM [Concomitant]
     Active Substance: CALCIUM
  9. DOCUSATE [Concomitant]
     Active Substance: DOCUSATE
  10. NITRO-DUR [Concomitant]
     Active Substance: NITROGLYCERIN
  11. NORVASC [Concomitant]
     Active Substance: AMLODIPINE BESYLATE
  12. PENTOXIFYLLINE. [Concomitant]
     Active Substance: PENTOXIFYLLINE
  13. BENLYSTA [Suspect]
     Active Substance: BELIMUMAB
     Indication: PRODUCT USED FOR UNKNOWN INDICATION
     Route: 042
  14. INNOHEP [Concomitant]
     Active Substance: TINZAPARIN SODIUM
     Route: 058

REACTIONS (15)
  - Lobar pneumonia [Unknown]
  - Prothrombin time prolonged [Unknown]
  - Clostridium test positive [Unknown]
  - Upper respiratory tract infection [Unknown]
  - Pulmonary granuloma [Unknown]
  - Pulmonary haemorrhage [Unknown]
  - Pneumonia [Unknown]
  - Rhinovirus infection [Unknown]
  - Tricuspid valve incompetence [Unknown]
  - Pulmonary alveolar haemorrhage [Unknown]
  - Pulmonary arterial pressure increased [Unknown]
  - International normalised ratio increased [Unknown]
  - Pleural effusion [Unknown]
  - Acute respiratory distress syndrome [Unknown]
  - Lymph node calcification [Unknown]
